FAERS Safety Report 10470597 (Version 1)
Quarter: 2014Q3

REPORT INFORMATION
  Report Type: Spontaneous
  Country: US (occurrence: US)
  Receive Date: 20140923
  Receipt Date: 20140923
  Transmission Date: 20150326
  Serious: Yes (Other)
  Sender: FDA-Public Use
  Company Number: CHPA2014US012371

PATIENT
  Age: 76 Year

DRUGS (5)
  1. EXCEDRIN MIGRAINE [Suspect]
     Active Substance: ACETAMINOPHEN\ASPIRIN\CAFFEINE
     Indication: MIGRAINE
     Dosage: 1 OR 2 DOSAGE FORM
     Route: 048
  2. EXCEDRIN PM [Suspect]
     Active Substance: ACETAMINOPHEN\DIPHENHYDRAMINE\DIPHENHYDRAMINE CITRATE
     Indication: INSOMNIA
     Route: 048
  3. EXCEDRIN PM [Suspect]
     Active Substance: ACETAMINOPHEN\DIPHENHYDRAMINE\DIPHENHYDRAMINE CITRATE
     Indication: OFF LABEL USE
  4. EXCEDRIN TENSION HEADACHE [Suspect]
     Active Substance: ACETAMINOPHEN\CAFFEINE
     Indication: HEADACHE
     Dosage: 1 OR 2 DOSAGE FORM
     Route: 048
  5. EXCEDRIN PM [Suspect]
     Active Substance: ACETAMINOPHEN\DIPHENHYDRAMINE\DIPHENHYDRAMINE CITRATE
     Indication: ARTHRITIS

REACTIONS (5)
  - Underdose [Unknown]
  - Loss of consciousness [Recovered/Resolved]
  - Tongue oedema [Recovered/Resolved]
  - Somnolence [Recovered/Resolved]
  - Arthropod sting [Recovered/Resolved]

NARRATIVE: CASE EVENT DATE: 2000
